FAERS Safety Report 26133660 (Version 1)
Quarter: 2025Q4

REPORT INFORMATION
  Report Type: Other
  Country: US (occurrence: US)
  Receive Date: 20251209
  Receipt Date: 20251209
  Transmission Date: 20260118
  Serious: Yes (Death, Hospitalization)
  Sender: ALVOGEN
  Company Number: US-ALVOGEN-2025099134

PATIENT
  Age: 50 Year
  Sex: Male

DRUGS (4)
  1. TRAZODONE [Suspect]
     Active Substance: TRAZODONE HYDROCHLORIDE
     Indication: Bipolar disorder
  2. QUETIAPINE [Suspect]
     Active Substance: QUETIAPINE
     Indication: Schizophrenia
  3. CLONAZEPAM [Concomitant]
     Active Substance: CLONAZEPAM
     Indication: Schizophrenia
  4. CANNABIS SATIVA SUBSP. INDICA TOP [Concomitant]
     Active Substance: CANNABIS SATIVA SUBSP. INDICA TOP
     Indication: Product used for unknown indication

REACTIONS (17)
  - Cardiac arrest [Fatal]
  - Bradycardia [Fatal]
  - Unresponsive to stimuli [Fatal]
  - Dyskinesia [Fatal]
  - Ventricular tachycardia [Fatal]
  - Atrial fibrillation [Fatal]
  - Pulseless electrical activity [Fatal]
  - Electrocardiogram QRS complex prolonged [Fatal]
  - Electrocardiogram QT prolonged [Fatal]
  - Troponin increased [Fatal]
  - Lactic acidosis [Fatal]
  - Hypokalaemia [Fatal]
  - Brain injury [Fatal]
  - Toxicity to various agents [Fatal]
  - Blood creatinine increased [Fatal]
  - Blood creatine phosphokinase increased [Fatal]
  - Overdose [Fatal]
